FAERS Safety Report 6295546-8 (Version None)
Quarter: 2009Q3

REPORT INFORMATION
  Report Type: 
  Country: None (occurrence: None)
  Receive Date: 20090731
  Receipt Date: 20090719
  Transmission Date: 20100115
  Serious: Yes (Other)
  Sender: FDA-Public Use
  Company Number: ADE2009-0758

PATIENT
  Age: 62 Year
  Sex: Female
  Weight: 85.7 kg

DRUGS (3)
  1. HYDROCHLOROTHIAZIDE [Suspect]
     Dosage: ORAL
     Route: 048
  2. NORVASC [Suspect]
     Indication: HYPERTENSION
     Dosage: ORAL
     Route: 048
  3. COZAAR [Suspect]
     Dosage: ORAL
     Route: 048

REACTIONS (5)
  - DIZZINESS [None]
  - DYSPNOEA [None]
  - FLUID RETENTION [None]
  - HEART RATE DECREASED [None]
  - VOMITING [None]
